FAERS Safety Report 23194698 (Version 1)
Quarter: 2023Q4

REPORT INFORMATION
  Report Type: Spontaneous
  Country: US (occurrence: US)
  Receive Date: 20231117
  Receipt Date: 20231117
  Transmission Date: 20240110
  Serious: No
  Sender: FDA-Public Use
  Company Number: US-drreddys-SPO/USA/23/0180897

PATIENT
  Age: 35 Year
  Sex: Female

DRUGS (1)
  1. ZENATANE [Suspect]
     Active Substance: ISOTRETINOIN
     Indication: Product used for unknown indication
     Dosage: RMA ISSUE DATE: 06 JULY 2023 03:45:23 PM, 09 AUGUST 2023 10:33:07 AM, 15 SEPTEMBER 2023 10:43:29 AM

REACTIONS (1)
  - Therapy cessation [Unknown]
